FAERS Safety Report 26056585 (Version 1)
Quarter: 2025Q4

REPORT INFORMATION
  Report Type: Spontaneous
  Country: US (occurrence: US)
  Receive Date: 20251118
  Receipt Date: 20251118
  Transmission Date: 20260118
  Serious: No
  Sender: ELI LILLY AND COMPANY
  Company Number: US-ELI_LILLY_AND_COMPANY-US202511009569

PATIENT
  Age: 44 Year
  Sex: Male

DRUGS (3)
  1. LYUMJEV [Suspect]
     Active Substance: INSULIN LISPRO-AABC
     Indication: Diabetes mellitus
     Dosage: UNK UNK, EACH MORNING (SLIDING SCALE)
     Route: 065
     Dates: start: 2024
  2. LYUMJEV [Suspect]
     Active Substance: INSULIN LISPRO-AABC
     Dosage: UNK UNK, EACH MORNING (SLIDING SCALE)
     Route: 065
     Dates: start: 20251031
  3. HUMALOG [Suspect]
     Active Substance: INSULIN LISPRO
     Indication: Diabetes mellitus
     Dosage: UNK UNK, EACH EVENING (AT NIGHT)
     Route: 065

REACTIONS (6)
  - Blood glucose increased [Unknown]
  - Drug ineffective [Unknown]
  - Infusion site erythema [Unknown]
  - Infusion site irritation [Unknown]
  - Infusion site discomfort [Unknown]
  - Infusion site pain [Unknown]

NARRATIVE: CASE EVENT DATE: 20251102
